FAERS Safety Report 12852014 (Version 2)
Quarter: 2016Q4

REPORT INFORMATION
  Report Type: Spontaneous
  Country: MX (occurrence: MX)
  Receive Date: 20161017
  Receipt Date: 20161019
  Transmission Date: 20170207
  Serious: Yes (Hospitalization)
  Sender: FDA-Public Use
  Company Number: MX-CELGENEUS-MEX-2016091125

PATIENT
  Age: 44 Year
  Sex: Female

DRUGS (7)
  1. VIDAZA [Suspect]
     Active Substance: AZACITIDINE
     Indication: MYELODYSPLASTIC SYNDROME
     Route: 058
     Dates: start: 20160829
  2. VIDAZA [Suspect]
     Active Substance: AZACITIDINE
     Dosage: 24 MILLIGRAM
     Route: 058
     Dates: start: 20160905, end: 20160905
  3. VIDAZA [Suspect]
     Active Substance: AZACITIDINE
     Route: 058
     Dates: start: 20161003, end: 20161004
  4. AMAL [Concomitant]
     Indication: VOMITING
  5. AMAL [Concomitant]
     Indication: NAUSEA
     Route: 065
  6. VIDAZA [Suspect]
     Active Substance: AZACITIDINE
     Route: 058
     Dates: start: 20161006
  7. VIDAZA [Suspect]
     Active Substance: AZACITIDINE
     Route: 058
     Dates: start: 20160926, end: 20160929

REACTIONS (4)
  - Fatigue [Not Recovered/Not Resolved]
  - Colitis [Unknown]
  - Post procedural complication [Unknown]
  - Drug prescribing error [Not Recovered/Not Resolved]

NARRATIVE: CASE EVENT DATE: 20160830
